FAERS Safety Report 4368573-5 (Version None)
Quarter: 2004Q2

REPORT INFORMATION
  Report Type: 
  Country: None (occurrence: None)
  Receive Date: 20040602
  Receipt Date: 20040511
  Transmission Date: 20050107
  Serious: Yes (Hospitalization, Other)
  Sender: FDA-Public Use
  Company Number: DE-JNJFOC-20040406106

PATIENT
  Age: 59 Year
  Sex: Female

DRUGS (1)
  1. DURAGESIC [Suspect]
     Indication: PAIN
     Dosage: 50 UG/HR, 1 IN 72 HOUR, TRANSDERMAL
     Route: 062

REACTIONS (4)
  - GASTRIC DISORDER [None]
  - HYPERHIDROSIS [None]
  - MYOCARDIAL INFARCTION [None]
  - VERTIGO [None]
